FAERS Safety Report 7215200-5 (Version None)
Quarter: 2011Q1

REPORT INFORMATION
  Report Type: 
  Country: None (occurrence: None)
  Receive Date: 20110107
  Receipt Date: 20101020
  Transmission Date: 20110831
  Serious: No
  Sender: FDA-Public Use
  Company Number: A0888129A

PATIENT
  Sex: Male

DRUGS (1)
  1. LOVAZA [Suspect]
     Dosage: 1CAP TWICE PER DAY
     Route: 065

REACTIONS (2)
  - PRURITUS [None]
  - RASH [None]
